FAERS Safety Report 19160376 (Version 2)
Quarter: 2021Q2

REPORT INFORMATION
  Report Type: Spontaneous
  Country: PT (occurrence: PT)
  Receive Date: 20210420
  Receipt Date: 20210512
  Transmission Date: 20210717
  Serious: Yes (Other)
  Sender: FDA-Public Use
  Company Number: NVSC2021PT086792

PATIENT
  Age: 66 Year
  Sex: Female

DRUGS (8)
  1. DABRAFENIB [Suspect]
     Active Substance: DABRAFENIB
     Dosage: 100 MG, BID
     Route: 065
  2. PREGABALIN. [Concomitant]
     Active Substance: PREGABALIN
     Indication: FIBROMYALGIA
     Dosage: 100 MG, BID
     Route: 065
  3. FENTANYL. [Concomitant]
     Active Substance: FENTANYL
     Indication: FIBROMYALGIA
     Dosage: 50 MCG/H (EVERY 72 HOURS)
     Route: 065
  4. DABRAFENIB [Suspect]
     Active Substance: DABRAFENIB
     Indication: MALIGNANT MELANOMA
     Dosage: 150 MG, BID
     Route: 065
     Dates: start: 202008
  5. TRAMETINIB [Suspect]
     Active Substance: TRAMETINIB
     Indication: MALIGNANT MELANOMA
     Dosage: 2 MG, QD
     Route: 065
     Dates: start: 202008
  6. OLSAR PLUS [Concomitant]
     Active Substance: HYDROCHLOROTHIAZIDE\OLMESARTAN MEDOXOMIL
     Indication: HYPERTENSION
     Dosage: 25/20 MG, QD
     Route: 065
  7. ALPRAZOLAM. [Concomitant]
     Active Substance: ALPRAZOLAM
     Indication: DEPRESSION
     Dosage: 0.5 MG, QD
     Route: 065
  8. SERTRALINE [Concomitant]
     Active Substance: SERTRALINE HYDROCHLORIDE
     Indication: DEPRESSION
     Dosage: 50 MG, QD
     Route: 065

REACTIONS (9)
  - Blood bilirubin increased [Unknown]
  - Blood lactate dehydrogenase increased [Unknown]
  - Pruritus [Recovering/Resolving]
  - Nausea [Recovered/Resolved]
  - Pyrexia [Recovered/Resolved]
  - Hypotension [Recovered/Resolved]
  - Neutropenia [Unknown]
  - Cholestasis [Unknown]
  - Dry skin [Recovering/Resolving]
